FAERS Safety Report 7038130-0 (Version None)
Quarter: 2010Q4

REPORT INFORMATION
  Report Type: 
  Country: None (occurrence: None)
  Receive Date: 20101011
  Receipt Date: 20101007
  Transmission Date: 20110411
  Serious: Yes (Hospitalization)
  Sender: FDA-Public Use
  Company Number: JP-ABBOTT-09P-087-0614752-00

PATIENT
  Sex: Female
  Weight: 55.1 kg

DRUGS (26)
  1. KALETRA [Suspect]
     Indication: HIV INFECTION
     Dosage: 4 TABLETS DAILY
     Route: 048
     Dates: start: 20080501, end: 20081202
  2. VALPROATE SODIUM [Suspect]
     Indication: CONVULSION PROPHYLAXIS
     Route: 048
     Dates: start: 20080708, end: 20080807
  3. GABAPENTIN [Suspect]
     Indication: CONVULSION PROPHYLAXIS
     Route: 048
     Dates: start: 20080808, end: 20100222
  4. GABAPENTIN [Suspect]
     Dosage: 800 MG DAILY
     Route: 048
     Dates: start: 20100223
  5. EMTRICITABINE W/TENOFOVIR [Suspect]
     Indication: HIV INFECTION
     Dosage: 1 TABLET DAILY
     Route: 048
     Dates: start: 20080623, end: 20100222
  6. LAMIVUDINE [Concomitant]
     Indication: HIV INFECTION
     Route: 048
     Dates: start: 20080501, end: 20080622
  7. ABACAVIR SULFATE [Concomitant]
     Indication: HIV INFECTION
     Route: 048
     Dates: start: 20080501, end: 20080622
  8. DARUNAVIR [Concomitant]
     Indication: HIV INFECTION
     Dosage: 800 MG DAILY
     Route: 048
     Dates: start: 20091217, end: 20100222
  9. DARUNAVIR [Concomitant]
     Dosage: 1200 MG DAILY
     Dates: start: 20100223, end: 20100322
  10. DARUNAVIR [Concomitant]
     Dosage: 800 MG DAILY
     Dates: start: 20100323
  11. GANCICLOVIR SODIUM [Concomitant]
     Indication: CYTOMEGALOVIRUS VIRAEMIA
     Route: 050
     Dates: start: 20080414, end: 20080503
  12. VALGANCICLOVIR HCL [Concomitant]
     Indication: CYTOMEGALOVIRUS VIRAEMIA
     Route: 048
     Dates: start: 20080530, end: 20080613
  13. VALGANCICLOVIR HCL [Concomitant]
     Route: 048
     Dates: start: 20080614, end: 20080627
  14. AZITHROMYCIN [Concomitant]
     Indication: OPPORTUNISTIC INFECTION PROPHYLAXIS
     Route: 048
     Dates: start: 20080527, end: 20080724
  15. FOSCARNET SODIUM [Concomitant]
     Indication: CYTOMEGALOVIRUS VIRAEMIA
     Dates: start: 20080504, end: 20080509
  16. ENTECAVIR HYDRATE [Concomitant]
     Indication: HEPATITIS B
     Dates: start: 20080410, end: 20080702
  17. ENTECAVIR HYDRATE [Concomitant]
     Dosage: 1 MG DAILY
     Dates: start: 20100223
  18. EPIRIZOLE [Concomitant]
     Indication: ANTIFUNGAL PROPHYLAXIS
     Dates: start: 20080501, end: 20080724
  19. PREDNISOLONE [Concomitant]
     Indication: PROPHYLAXIS
     Dates: start: 20080502, end: 20080515
  20. PREDNISOLONE [Concomitant]
     Dosage: 2.5 MG TO 16 MG TWICE PER A DAY
     Dates: start: 20080612, end: 20080718
  21. METHYLPREDNISOLONE [Concomitant]
     Indication: PROPHYLAXIS
     Dosage: 4 MG TO 12 MG TWICE PER A DAY
     Dates: start: 20080516, end: 20080611
  22. PHENYTOIN [Concomitant]
     Indication: CONVULSION PROPHYLAXIS
     Dates: start: 20080706, end: 20080707
  23. RITONAVIR [Concomitant]
     Indication: HIV INFECTION
     Dosage: 100 MG DAILY
     Route: 048
     Dates: start: 20081203, end: 20100222
  24. RITONAVIR [Concomitant]
     Dosage: 200 MG DAILY
     Route: 048
     Dates: start: 20100223, end: 20100322
  25. RITONAVIR [Concomitant]
     Dosage: 100 MG DAILY
     Route: 048
     Dates: start: 20100323
  26. RALTEGRAVIR [Concomitant]
     Indication: HIV INFECTION
     Dosage: 800 MG DAILY
     Route: 048
     Dates: start: 20100223

REACTIONS (6)
  - BETA 2 MICROGLOBULIN URINE INCREASED [None]
  - BLOOD ALKALINE PHOSPHATASE INCREASED [None]
  - BLOOD TRIGLYCERIDES INCREASED [None]
  - EPILEPSY [None]
  - GAMMA-GLUTAMYLTRANSFERASE INCREASED [None]
  - HEPATIC FUNCTION ABNORMAL [None]
